FAERS Safety Report 5306305-4 (Version None)
Quarter: 2007Q2

REPORT INFORMATION
  Report Type: 
  Country: None (occurrence: None)
  Receive Date: 20070424
  Receipt Date: 20070420
  Transmission Date: 20071010
  Serious: Yes (Other)
  Sender: FDA-Public Use
  Company Number: US-ABBOTT-07P-163-0355985-00

PATIENT
  Sex: Male
  Weight: 113 kg

DRUGS (14)
  1. RITONAVIR SOFT GELATIN CAPSULES [Suspect]
     Indication: HIV INFECTION
     Route: 048
     Dates: start: 20060628
  2. PLACEBO(TMC125) [Concomitant]
     Indication: HIV INFECTION
     Dosage: TABLETS
     Route: 048
     Dates: start: 20060628
  3. TMC114 [Concomitant]
     Indication: HIV INFECTION
     Dosage: TABLETS
     Route: 048
     Dates: start: 20060628
  4. VIREAD [Concomitant]
     Indication: DRUG USE FOR UNKNOWN INDICATION
     Route: 048
     Dates: start: 20060628
  5. LAMIVUDINE + ZIDOVUDINE [Concomitant]
     Indication: HIV INFECTION
     Route: 048
     Dates: start: 20060628
  6. BUSPIRONE HCL [Concomitant]
     Indication: DEPRESSION
     Route: 048
  7. CITALOPRAM HYDROBROMIDE [Concomitant]
     Indication: DEPRESSION
     Route: 048
  8. EPOETIN ALFA [Concomitant]
     Indication: ANAEMIA
     Route: 058
  9. SPECTRAZOLE [Concomitant]
     Indication: TINEA PEDIS
     Route: 061
  10. LANSOPRAZOLE [Concomitant]
     Indication: GASTROOESOPHAGEAL REFLUX DISEASE
     Route: 048
  11. LOMOTIL [Concomitant]
     Indication: DIARRHOEA
     Route: 048
  12. TRAZODONE HCL [Concomitant]
     Indication: INSOMNIA
     Route: 048
  13. HYOSCYAMINE SULFATE [Concomitant]
     Indication: IRRITABLE BOWEL SYNDROME
     Route: 048
     Dates: start: 20060731
  14. CHOLESTYRAMINE POWDER [Concomitant]
     Indication: DIARRHOEA
     Route: 048
     Dates: start: 20061211

REACTIONS (6)
  - CEREBELLAR ATROPHY [None]
  - CEREBRAL ATROPHY [None]
  - CEREBRAL ISCHAEMIA [None]
  - DISORIENTATION [None]
  - PARTIAL SEIZURES [None]
  - TRANSIENT ISCHAEMIC ATTACK [None]
